FAERS Safety Report 7587256-1 (Version None)
Quarter: 2011Q3

REPORT INFORMATION
  Report Type: 
  Country: None (occurrence: None)
  Receive Date: 20110701
  Receipt Date: 20110629
  Transmission Date: 20111222
  Serious: Yes (Death)
  Sender: FDA-Public Use
  Company Number: PHHY2011GR57641

PATIENT
  Age: 50 Year
  Sex: Female

DRUGS (3)
  1. HALOPERIDOL [Suspect]
     Indication: MANIA
     Dosage: UNK
  2. LORAZEPAM [Suspect]
     Indication: MANIA
     Dosage: UNK
  3. VALPROIC ACID [Suspect]
     Indication: MANIA
     Dosage: UNK

REACTIONS (1)
  - ACUTE MYOCARDIAL INFARCTION [None]
